FAERS Safety Report 13071061 (Version 1)
Quarter: 2016Q4

REPORT INFORMATION
  Report Type: Spontaneous
  Country: US (occurrence: US)
  Receive Date: 20161229
  Receipt Date: 20161229
  Transmission Date: 20170207
  Serious: Yes (Hospitalization, Other)
  Sender: FDA-Public Use
  Company Number: US-TEVA-722881USA

PATIENT
  Sex: Female

DRUGS (20)
  1. EXFORGE [Concomitant]
     Active Substance: AMLODIPINE BESYLATE\VALSARTAN
  2. OMEPRAZOLE. [Concomitant]
     Active Substance: OMEPRAZOLE
  3. TRADJENTA [Concomitant]
     Active Substance: LINAGLIPTIN
  4. PANTOPRAZOLE [Concomitant]
     Active Substance: PANTOPRAZOLE SODIUM
  5. COPAXONE [Suspect]
     Active Substance: GLATIRAMER ACETATE
     Indication: MULTIPLE SCLEROSIS
     Route: 058
     Dates: start: 20140611
  6. VITAMIN D [Concomitant]
     Active Substance: CHOLECALCIFEROL
  7. METOCLOPRAMIDE. [Concomitant]
     Active Substance: METOCLOPRAMIDE
  8. FISH OIL [Concomitant]
     Active Substance: FISH OIL
  9. TYLENOL [Concomitant]
     Active Substance: ACETAMINOPHEN
  10. PROVIGIL [Concomitant]
     Active Substance: MODAFINIL
  11. FOLBIC [Concomitant]
     Active Substance: CYANOCOBALAMIN\FOLIC ACID\PYRIDOXINE
  12. VITAMIN C [Concomitant]
     Active Substance: ASCORBIC ACID
  13. LEXAPRO [Concomitant]
     Active Substance: ESCITALOPRAM OXALATE
  14. CALCIUM D [Concomitant]
     Active Substance: CALCIUM\VITAMIN D
  15. MAGNESIUM [Concomitant]
     Active Substance: MAGNESIUM
  16. LIPITOR [Concomitant]
     Active Substance: ATORVASTATIN CALCIUM
  17. ASPIRIN. [Concomitant]
     Active Substance: ASPIRIN
  18. LASIX [Concomitant]
     Active Substance: FUROSEMIDE
  19. HYDROCODONE BITARTRATE AND ACETAMINOPHEN [Concomitant]
     Active Substance: ACETAMINOPHEN\HYDROCODONE BITARTRATE
     Dosage: 10/325 MG
  20. MODAFINIL. [Concomitant]
     Active Substance: MODAFINIL

REACTIONS (3)
  - Vulval cancer [Not Recovered/Not Resolved]
  - Multiple sclerosis relapse [Unknown]
  - Fall [Unknown]

NARRATIVE: CASE EVENT DATE: 2016
